FAERS Safety Report 24399457 (Version 3)
Quarter: 2025Q1

REPORT INFORMATION
  Report Type: Spontaneous
  Country: JP (occurrence: JP)
  Receive Date: 20241005
  Receipt Date: 20250204
  Transmission Date: 20250409
  Serious: Yes (Other)
  Sender: ROCHE
  Company Number: JP-CHUGAI-2024034359AA

PATIENT
  Age: 72 Year
  Sex: Female

DRUGS (4)
  1. TECENTRIQ [Suspect]
     Active Substance: ATEZOLIZUMAB
     Indication: Triple negative breast cancer
     Route: 040
     Dates: start: 20230727
  2. TECENTRIQ [Suspect]
     Active Substance: ATEZOLIZUMAB
     Route: 040
  3. ABRAXANE [Suspect]
     Active Substance: PACLITAXEL
     Indication: Triple negative breast cancer
     Route: 040
  4. ABRAXANE [Suspect]
     Active Substance: PACLITAXEL
     Route: 040

REACTIONS (3)
  - Rash [Not Recovered/Not Resolved]
  - Neutrophil count decreased [Recovering/Resolving]
  - Thyroid disorder [Recovered/Resolved]

NARRATIVE: CASE EVENT DATE: 20230801
